FAERS Safety Report 5771729-8 (Version None)
Quarter: 2008Q2

REPORT INFORMATION
  Report Type: 
  Country: None (occurrence: None)
  Receive Date: 20080613
  Receipt Date: 20080604
  Transmission Date: 20081010
  Serious: Yes (Other)
  Sender: FDA-Public Use
  Company Number: CA-ABBOTT-08P-028-0455392-00

PATIENT
  Sex: Male
  Weight: 77.18 kg

DRUGS (4)
  1. LUPRON DEPOT [Suspect]
     Indication: DRUG USE FOR UNKNOWN INDICATION
     Dates: start: 20051115
  2. ESOMEPRAZOLE MAGNESIUM [Concomitant]
     Indication: DRUG USE FOR UNKNOWN INDICATION
     Route: 048
  3. CALCIUM [Concomitant]
     Indication: DRUG USE FOR UNKNOWN INDICATION
     Route: 048
  4. ERGOCALCIFEROL [Concomitant]
     Indication: DRUG USE FOR UNKNOWN INDICATION
     Route: 048

REACTIONS (1)
  - COLONIC POLYP [None]
